FAERS Safety Report 21916337 (Version 1)
Quarter: 2023Q1

REPORT INFORMATION
  Report Type: Spontaneous
  Country: None (occurrence: US)
  Receive Date: 20230126
  Receipt Date: 20230126
  Transmission Date: 20230417
  Serious: Yes (Other)
  Sender: FDA-Public Use
  Company Number: US-GREER Laboratories, Inc.-2137115

PATIENT
  Age: 10 Year
  Sex: Male
  Weight: 30.8 kg

DRUGS (21)
  1. STANDARDIZED MITE, DERMATOPHAGOIDES FARINAE [Suspect]
     Active Substance: DERMATOPHAGOIDES FARINAE
     Indication: Rhinitis allergic
     Route: 058
     Dates: start: 20180614
  2. STANDARDIZED MITE DERMATOPHAGOIDES PTERONYSSINUS [Suspect]
     Active Substance: DERMATOPHAGOIDES PTERONYSSINUS
     Route: 058
     Dates: start: 20180614
  3. HORSE EPITHELIA [Suspect]
     Active Substance: EQUUS CABALLUS SKIN
     Route: 058
     Dates: start: 20180614
  4. GOLDENROD POLLEN [Suspect]
     Active Substance: SOLIDAGO CANADENSIS POLLEN
     Route: 058
     Dates: start: 20180614
  5. WHITE ALDER POLLEN [Suspect]
     Active Substance: ALNUS RHOMBIFOLIA POLLEN
     Route: 058
     Dates: start: 20180614
  6. EASTERN COTTONWOOD POLLEN [Suspect]
     Active Substance: POPULUS DELTOIDES POLLEN
     Route: 058
     Dates: start: 20180614
  7. HACKBERRY POLLEN [Suspect]
     Active Substance: CELTIS OCCIDENTALIS POLLEN
     Route: 058
     Dates: start: 20180614
  8. STANDARDIZED ORCHARD GRASS [Suspect]
     Active Substance: DACTYLIS GLOMERATA POLLEN
     Route: 058
     Dates: start: 20180614
  9. STANDARDIZED TIMOTHY GRASS [Suspect]
     Active Substance: PHLEUM PRATENSE POLLEN
     Route: 058
     Dates: start: 20180614
  10. WHITE OAK POLLEN [Suspect]
     Active Substance: QUERCUS ALBA POLLEN
     Route: 058
     Dates: start: 20180614
  11. EASTERN SYCAMORE POLLEN [Suspect]
     Active Substance: PLATANUS OCCIDENTALIS POLLEN
     Route: 058
     Dates: start: 20180614
  12. STANDARDIZED MEADOW FESCUE GRASS [Suspect]
     Active Substance: FESTUCA PRATENSIS POLLEN
     Route: 058
     Dates: start: 20180614
  13. JOHNSON GRASS POLLEN [Suspect]
     Active Substance: SORGHUM HALEPENSE POLLEN
     Route: 058
     Dates: start: 20180614
  14. STANDARDIZED KENTUCKY BLUE (JUNE) GRASS [Suspect]
     Active Substance: POA PRATENSIS POLLEN
     Route: 058
     Dates: start: 20180614
  15. SHAGBARK HICKORY POLLEN [Suspect]
     Active Substance: CARYA OVATA POLLEN
     Route: 058
     Dates: start: 20180614
  16. LORATADINE [Concomitant]
     Active Substance: LORATADINE
  17. PATADAY [Concomitant]
     Active Substance: OLOPATADINE HYDROCHLORIDE
     Route: 047
  18. FLONASE [Concomitant]
     Active Substance: FLUTICASONE PROPIONATE
     Route: 045
  19. PATANASE [Concomitant]
     Active Substance: OLOPATADINE HYDROCHLORIDE
     Route: 045
  20. MOMESTASONE [Concomitant]
     Route: 061
  21. FLOVENT HFA [Concomitant]
     Active Substance: FLUTICASONE PROPIONATE

REACTIONS (11)
  - Lacrimation increased [Recovered/Resolved]
  - Ocular hyperaemia [Recovered/Resolved]
  - Eye oedema [Recovered/Resolved]
  - Rhinorrhoea [Recovered/Resolved]
  - Throat irritation [Recovered/Resolved]
  - Blood pressure decreased [Recovered/Resolved]
  - Ear canal erythema [Recovered/Resolved]
  - Eyelid oedema [Recovered/Resolved]
  - Nasal inflammation [Recovered/Resolved]
  - Pharyngeal erythema [Recovered/Resolved]
  - Throat clearing [Recovered/Resolved]

NARRATIVE: CASE EVENT DATE: 20221109
